FAERS Safety Report 19064154 (Version 4)
Quarter: 2022Q1

REPORT INFORMATION
  Report Type: Report from Study
  Country: BR (occurrence: BR)
  Receive Date: 20210326
  Receipt Date: 20220325
  Transmission Date: 20220423
  Serious: Yes (Hospitalization, Other)
  Sender: FDA-Public Use
  Company Number: BR-UCBSA-2019051423

PATIENT
  Age: 67 Year
  Sex: Female
  Weight: 55 kg

DRUGS (27)
  1. CERTOLIZUMAB PEGOL [Suspect]
     Active Substance: CERTOLIZUMAB PEGOL
     Indication: Rheumatoid arthritis
     Dosage: 1 APPLICATION IN EVERY 5 DAYS
     Route: 058
     Dates: start: 20191101
  2. CERTOLIZUMAB PEGOL [Suspect]
     Active Substance: CERTOLIZUMAB PEGOL
     Dosage: 400 MILLIGRAM, EV 4 WEEKS
     Route: 058
     Dates: start: 202011
  3. CERTOLIZUMAB PEGOL [Suspect]
     Active Substance: CERTOLIZUMAB PEGOL
     Dosage: 200 MILLIGRAM, EV 15 DAYS
     Route: 058
  4. ENALAPRIL [Concomitant]
     Active Substance: ENALAPRIL
     Indication: Hypertension
     Dosage: 20 MILLIGRAM, 2X/DAY (BID)
     Route: 048
     Dates: start: 2015
  5. ENALAPRIL [Concomitant]
     Active Substance: ENALAPRIL
     Indication: Osteoarthritis
  6. SIMVASTATIN [Concomitant]
     Active Substance: SIMVASTATIN
     Indication: Blood cholesterol increased
     Dosage: 20 MILLIGRAM, ONCE DAILY (QD)
     Route: 048
     Dates: start: 2018
  7. AMITRIPTYLINE HYDROCHLORIDE [Concomitant]
     Active Substance: AMITRIPTYLINE HYDROCHLORIDE
     Indication: Rheumatoid arthritis
     Dosage: 25 MILLIGRAM, ONCE DAILY (QD)
     Route: 048
  8. AMITRIPTYLINE HYDROCHLORIDE [Concomitant]
     Active Substance: AMITRIPTYLINE HYDROCHLORIDE
     Indication: Insomnia
  9. PREDNISONE [Concomitant]
     Active Substance: PREDNISONE
     Indication: Rheumatoid arthritis
     Dosage: 5 MILLIGRAM, EV 2 DAYS (QOD)
     Route: 048
     Dates: start: 2018, end: 2021
  10. DIMENHYDRINATE [Concomitant]
     Active Substance: DIMENHYDRINATE
     Indication: Vomiting
     Dosage: UNK
     Route: 048
     Dates: start: 20191118
  11. ENTEROGERMINA [BACILLUS SUBTILIS] [Concomitant]
     Indication: Diarrhoea
     Dosage: UNK
     Route: 048
     Dates: start: 20191118
  12. ALENDRONATE SODIUM [Concomitant]
     Active Substance: ALENDRONATE SODIUM
     Indication: Rheumatoid arthritis
     Dosage: 70 MILLIGRAM, WEEKLY (QW)
     Route: 048
     Dates: start: 2018
  13. VITAMIN D NOS [Concomitant]
     Active Substance: VITAMIN D NOS
     Indication: Rheumatoid arthritis
     Dosage: UNK
     Dates: start: 2018
  14. VITAMIN D NOS [Concomitant]
     Active Substance: VITAMIN D NOS
     Dosage: 5000 INTERNATIONAL UNIT
     Dates: start: 2019
  15. NITROFURANTOIN [Concomitant]
     Active Substance: NITROFURANTOIN
     Indication: Urinary tract infection
     Dosage: UNK
     Dates: start: 202003
  16. IBUPROFEN [Concomitant]
     Active Substance: IBUPROFEN
     Indication: Urinary tract infection
     Dosage: 300 MILLIGRAM
     Dates: start: 202008
  17. DIPYRONE [Concomitant]
     Active Substance: DIPYRONE
     Indication: Urinary tract infection
     Dosage: 500 MILLIGRAM
  18. DIPYRONE [Concomitant]
     Active Substance: DIPYRONE
     Indication: Pyrexia
  19. BETAMETHASONE DIPROPIONATE [Concomitant]
     Active Substance: BETAMETHASONE DIPROPIONATE
     Indication: Arthralgia
     Dosage: UNK
     Dates: start: 20201209, end: 20201209
  20. MACRODANTIN [Concomitant]
     Active Substance: NITROFURANTOIN
     Indication: Urinary tract infection
     Dosage: UNK
     Dates: start: 202004, end: 202008
  21. AMOXICILINA [AMOXICILLIN SODIUM] [Concomitant]
     Indication: Urinary tract infection
     Dosage: 500 MILLIGRAM
     Dates: start: 202101, end: 202101
  22. AMOXICILINA [AMOXICILLIN SODIUM] [Concomitant]
     Dosage: 500 UNK
     Dates: start: 201202
  23. AMOXICILINA + CLAVULANATO POTASSICO [Concomitant]
     Indication: Urinary tract infection
     Dosage: UNK
     Dates: start: 20210219, end: 20210301
  24. ENOXAPARIN SODIUM [Concomitant]
     Active Substance: ENOXAPARIN SODIUM
     Indication: Thrombosis prophylaxis
     Dosage: 1 DOSAGE FORM, ONCE DAILY (QD)
     Route: 048
     Dates: start: 20220210, end: 20220227
  25. LOPERAMIDE [Concomitant]
     Active Substance: LOPERAMIDE
     Indication: Colitis
     Dosage: 1 DOSAGE FORM, ONCE DAILY (QD)
     Route: 048
  26. OMEPRAZOLE [Concomitant]
     Active Substance: OMEPRAZOLE
     Indication: Prophylaxis
     Dosage: 1 DOSAGE FORM, ONCE DAILY (QD)
     Route: 048
  27. GLUTAMINE [LEVOGLUTAMIDE] [Concomitant]
     Indication: Supplementation therapy
     Dosage: 1 DOSAGE FORM, ONCE DAILY (QD)
     Route: 048

REACTIONS (15)
  - Klebsiella infection [Recovered/Resolved]
  - Multiple sclerosis [Recovered/Resolved]
  - Pancreatic neoplasm [Not Recovered/Not Resolved]
  - Cholangitis acute [Recovering/Resolving]
  - Prosthesis implantation [Recovering/Resolving]
  - Vomiting [Recovering/Resolving]
  - Diarrhoea [Recovered/Resolved]
  - Dysgeusia [Not Recovered/Not Resolved]
  - Malaise [Recovered/Resolved]
  - Dysstasia [Recovered/Resolved]
  - Arthralgia [Not Recovered/Not Resolved]
  - Back pain [Recovered/Resolved]
  - Anaemia [Not Recovered/Not Resolved]
  - Drug ineffective [Unknown]
  - Product use issue [Unknown]

NARRATIVE: CASE EVENT DATE: 20191101
